FAERS Safety Report 9685607 (Version 1)
Quarter: 2013Q4

REPORT INFORMATION
  Report Type: Spontaneous
  Country: US (occurrence: US)
  Receive Date: 20131113
  Receipt Date: 20131113
  Transmission Date: 20140711
  Serious: No
  Sender: FDA-Public Use
  Company Number: US-GLAXOSMITHKLINE-A1000270A

PATIENT
  Sex: Male

DRUGS (12)
  1. CARVEDILOL [Suspect]
     Indication: BLOOD PRESSURE
     Dosage: 25MG TWICE PER DAY
     Route: 048
     Dates: start: 2007
  2. AMIODARONE [Concomitant]
  3. LASIX [Concomitant]
  4. QUINAPRIL [Concomitant]
  5. ALDACTONE [Concomitant]
  6. NORVASC [Concomitant]
     Dosage: 2.5MG TWICE PER DAY
  7. ZETIA [Concomitant]
  8. WELCHOL [Concomitant]
  9. PRANDIN [Concomitant]
     Dates: start: 201202
  10. BYDUREON [Concomitant]
  11. NIFEDIPINE [Concomitant]
  12. INSULIN [Concomitant]
     Dates: start: 201202

REACTIONS (3)
  - Arrhythmia [Recovering/Resolving]
  - Blood pressure diastolic increased [Recovering/Resolving]
  - Heart rate abnormal [Recovering/Resolving]
